FAERS Safety Report 5586306-1 (Version None)
Quarter: 2008Q1

REPORT INFORMATION
  Report Type: 
  Country: None (occurrence: None)
  Receive Date: 20080107
  Receipt Date: 20080107
  Transmission Date: 20080703
  Serious: No
  Sender: FDA-Public Use
  Company Number: None

PATIENT
  Age: 63 Year
  Sex: Male
  Weight: 88.4514 kg

DRUGS (2)
  1. BUTALBITAL [Suspect]
     Indication: PAIN MANAGEMENT
     Dates: start: 20071016, end: 20071021
  2. BUTALBITAL [Suspect]

REACTIONS (3)
  - DRUG DISPENSING ERROR [None]
  - PAIN [None]
  - PHARMACEUTICAL PRODUCT COMPLAINT [None]
